FAERS Safety Report 16920103 (Version 3)
Quarter: 2020Q1

REPORT INFORMATION
  Report Type: Spontaneous
  Country: IT (occurrence: IT)
  Receive Date: 20191015
  Receipt Date: 20200205
  Transmission Date: 20200409
  Serious: Yes (Hospitalization)
  Sender: FDA-Public Use
  Company Number: IT-JNJFOC-20191014457

PATIENT
  Age: 68 Year
  Sex: Male

DRUGS (9)
  1. EUTIROX [Concomitant]
     Active Substance: LEVOTHYROXINE SODIUM
     Dosage: AT 6 O^CLOCK
     Route: 065
  2. NEXIUM [Concomitant]
     Active Substance: ESOMEPRAZOLE MAGNESIUM
     Dosage: 6 O^CLOCK
     Route: 065
  3. TRABECTEDIN [Suspect]
     Active Substance: TRABECTEDIN
     Indication: LEIOMYOSARCOMA
     Route: 042
     Dates: start: 20161216, end: 20161216
  4. RAMIPRIL. [Concomitant]
     Active Substance: RAMIPRIL
     Dosage: AT 6 O^CLOCK
     Route: 065
  5. METOPROLOL. [Concomitant]
     Active Substance: METOPROLOL
     Dosage: 1/4 CP AT 6-14-22 O^CLOCK
     Route: 065
  6. FLUBASON [Concomitant]
     Active Substance: DESOXIMETASONE
     Dosage: 1 APPLICATION
     Route: 065
  7. TORVAST [Concomitant]
     Active Substance: ATORVASTATIN
     Dosage: HALF CAPSULE AT 22 O^CLOCK
     Route: 065
  8. CARDIOASPIRIN [Concomitant]
     Active Substance: ASPIRIN
     Dosage: AT 12 O^CLOCK
     Route: 065
  9. FORMISTIN [Concomitant]
     Indication: PRURITUS
     Dosage: IN CASE OF ITCH
     Route: 065

REACTIONS (1)
  - Myocardial necrosis marker increased [Recovered/Resolved with Sequelae]

NARRATIVE: CASE EVENT DATE: 20170109
